FAERS Safety Report 25410688 (Version 2)
Quarter: 2025Q2

REPORT INFORMATION
  Report Type: Report from Study
  Country: IN (occurrence: IN)
  Receive Date: 20250609
  Receipt Date: 20250612
  Transmission Date: 20250716
  Serious: Yes (Other)
  Sender: UCB
  Company Number: IN-UCBSA-2025033005

PATIENT

DRUGS (1)
  1. LEVETIRACETAM [Suspect]
     Active Substance: LEVETIRACETAM
     Indication: Seizure

REACTIONS (4)
  - Hypoxic-ischaemic encephalopathy [Unknown]
  - Cerebral atrophy [Unknown]
  - Hydrocephalus [Unknown]
  - Lipids abnormal [Unknown]
